FAERS Safety Report 8480996-1 (Version None)
Quarter: 2012Q3

REPORT INFORMATION
  Report Type: 
  Country: None (occurrence: None)
  Receive Date: 20120702
  Receipt Date: 20120621
  Transmission Date: 20120928
  Serious: Yes (Hospitalization)
  Sender: FDA-Public Use
  Company Number: ES-ELI_LILLY_AND_COMPANY-ES201206007580

PATIENT
  Sex: Female
  Weight: 61 kg

DRUGS (7)
  1. LYRICA [Concomitant]
     Dosage: 150 MG, EACH MORNING
     Route: 048
  2. CONDROSULF [Concomitant]
     Indication: BONE DISORDER
     Dosage: 400 MG, QD
     Route: 048
  3. LEVOTHROID [Concomitant]
     Dosage: 75 MG, QOD
     Route: 048
  4. HIDROFEROL [Concomitant]
     Indication: BONE DISORDER
     Dosage: 5 GTT, QD
     Route: 048
  5. LEVOTHROID [Concomitant]
     Indication: THYROID DISORDER
     Dosage: 50 MG, QOD
     Route: 048
  6. FORTEO [Suspect]
     Indication: OSTEOPOROSIS
     Dosage: 20 UG, QD
     Route: 058
     Dates: start: 20110223
  7. LYRICA [Concomitant]
     Indication: TRIGEMINAL NERVE DISORDER
     Dosage: 300 MG, EACH EVENING
     Route: 048

REACTIONS (1)
  - SURGERY [None]
